FAERS Safety Report 19080553 (Version 1)
Quarter: 2021Q1

REPORT INFORMATION
  Report Type: Spontaneous
  Country: TW (occurrence: TW)
  Receive Date: 20210331
  Receipt Date: 20210331
  Transmission Date: 20210420
  Serious: Yes (Death)
  Sender: FDA-Public Use
  Company Number: TW-009507513-2103TWN007704

PATIENT
  Age: 76 Year
  Sex: Male

DRUGS (1)
  1. KEYTRUDA [Suspect]
     Active Substance: PEMBROLIZUMAB
     Indication: ADENOCARCINOMA
     Dosage: UNK
     Dates: start: 2017

REACTIONS (2)
  - Chronic obstructive pulmonary disease [Fatal]
  - Therapy partial responder [Unknown]

NARRATIVE: CASE EVENT DATE: 20210310
